FAERS Safety Report 12171506 (Version 1)
Quarter: 2016Q1

REPORT INFORMATION
  Report Type: Report from Study
  Country: AU (occurrence: AU)
  Receive Date: 20160311
  Receipt Date: 20160311
  Transmission Date: 20160526
  Serious: Yes (Other)
  Sender: FDA-Public Use
  Company Number: AU-REGENERON PHARMACEUTICALS, INC.-2014-19838

PATIENT

DRUGS (4)
  1. EYLEA [Suspect]
     Active Substance: AFLIBERCEPT
     Dosage: 2 MG, EVERY 4 WEEKS, LEFT EYE
     Route: 031
     Dates: start: 201206
  2. EYLEA [Suspect]
     Active Substance: AFLIBERCEPT
     Dosage: 2 MG, EVERY 4-5 WEEKS RIGHT EYE
     Route: 031
     Dates: start: 201206
  3. EYLEA [Suspect]
     Active Substance: AFLIBERCEPT
     Dosage: 2 MG, EVERY 5-8 WEEKS
     Route: 031
     Dates: start: 201206
  4. EYLEA [Suspect]
     Active Substance: AFLIBERCEPT
     Indication: NEOVASCULAR AGE-RELATED MACULAR DEGENERATION
     Dosage: 2 MG, EVERY 4-5 WEEKS RIGHT EYE
     Route: 031
     Dates: start: 201206

REACTIONS (2)
  - Inappropriate schedule of drug administration [Unknown]
  - Eye haemorrhage [Not Recovered/Not Resolved]

NARRATIVE: CASE EVENT DATE: 201206
